FAERS Safety Report 14151868 (Version 2)
Quarter: 2017Q4

REPORT INFORMATION
  Report Type: Spontaneous
  Country: US (occurrence: US)
  Receive Date: 20171102
  Receipt Date: 20171226
  Transmission Date: 20180321
  Serious: Yes (Other)
  Sender: FDA-Public Use
  Company Number: US-SUN PHARMACEUTICAL INDUSTRIES LTD-2017US-153837

PATIENT
  Sex: Female

DRUGS (6)
  1. METHOTREXATE. [Suspect]
     Active Substance: METHOTREXATE
     Indication: METASTATIC CARCINOID TUMOUR
     Dosage: UNK
     Route: 065
     Dates: start: 201212, end: 201301
  2. VINCRISTINE [Suspect]
     Active Substance: VINCRISTINE
     Indication: METASTASES TO MENINGES
     Dosage: UNK
     Route: 065
     Dates: start: 201212, end: 201301
  3. METHOTREXATE. [Suspect]
     Active Substance: METHOTREXATE
     Indication: METASTASES TO MENINGES
  4. METHOTREXATE. [Suspect]
     Active Substance: METHOTREXATE
     Indication: CHOROID PLEXUS CARCINOMA
  5. VINCRISTINE [Suspect]
     Active Substance: VINCRISTINE
     Indication: METASTATIC CARCINOID TUMOUR
  6. VINCRISTINE [Suspect]
     Active Substance: VINCRISTINE
     Indication: CHOROID PLEXUS CARCINOMA

REACTIONS (3)
  - Full blood count decreased [Unknown]
  - Vomiting [Unknown]
  - Nausea [Unknown]
